FAERS Safety Report 9380893 (Version 1)
Quarter: 2013Q3

REPORT INFORMATION
  Report Type: Spontaneous
  Country: IT (occurrence: IT)
  Receive Date: 20130703
  Receipt Date: 20130703
  Transmission Date: 20140515
  Serious: Yes (Hospitalization)
  Sender: FDA-Public Use
  Company Number: IT-MERCK-1307ITA000114

PATIENT
  Age: 77 Year
  Sex: Female

DRUGS (4)
  1. HYZAAR 50/12.5 [Suspect]
     Dosage: 50 MG+12.5 MG, DAILY
     Route: 048
     Dates: start: 20090101, end: 20130527
  2. SEREPRILE [Suspect]
     Dosage: 100 MG, DAILY
     Route: 048
     Dates: start: 20130510, end: 20130527
  3. NORVASC [Concomitant]
     Dosage: UNK
     Dates: start: 20100601, end: 20130527
  4. TRITTICO [Concomitant]

REACTIONS (7)
  - Psychomotor hyperactivity [Recovering/Resolving]
  - Confusional state [Recovering/Resolving]
  - Epileptic aura [Recovering/Resolving]
  - Hypernatraemia [Recovering/Resolving]
  - Dyskinesia [Recovering/Resolving]
  - Cyanosis [Recovering/Resolving]
  - Hyponatraemia [None]
